FAERS Safety Report 9499355 (Version 1)
Quarter: 2013Q3

REPORT INFORMATION
  Report Type: Spontaneous
  Country: US (occurrence: US)
  Receive Date: 20130905
  Receipt Date: 20130905
  Transmission Date: 20140515
  Serious: Yes (Other)
  Sender: FDA-Public Use
  Company Number: US-AMGEN-USASP2013061131

PATIENT
  Age: 40 Year
  Sex: Female

DRUGS (1)
  1. ENBREL [Suspect]
     Indication: PSORIASIS
     Dosage: UNK
     Route: 065
     Dates: start: 20110906

REACTIONS (5)
  - Cubital tunnel syndrome [Recovered/Resolved]
  - Carpal tunnel decompression [Recovered/Resolved]
  - Tenosynovitis stenosans [Recovered/Resolved]
  - Joint destruction [Recovered/Resolved]
  - Arthralgia [Not Recovered/Not Resolved]
